FAERS Safety Report 4301547-9 (Version None)
Quarter: 2004Q1

REPORT INFORMATION
  Report Type: 
  Country: None (occurrence: None)
  Receive Date: 20040219
  Receipt Date: 20040204
  Transmission Date: 20041129
  Serious: Yes (Hospitalization)
  Sender: FDA-Public Use
  Company Number: 2004IM000221

PATIENT
  Age: 65 Year
  Sex: Male

DRUGS (6)
  1. ADVAFERON (A643_INTERFERON ALFACON-1) [Suspect]
     Indication: HEPATITIS C
     Dosage: 12 MU; QD' SUBCUTANEOUS
     Route: 058
     Dates: start: 20020327, end: 20020402
  2. AMLODIPINE BESYLATE [Concomitant]
  3. THEOPHYLLINE [Concomitant]
  4. NIZATIDINE [Concomitant]
  5. ALUMINUM HYDROXIDE GEL [Concomitant]
  6. BROTIZOLAM [Concomitant]

REACTIONS (1)
  - VENTRICULAR EXTRASYSTOLES [None]
